FAERS Safety Report 19887328 (Version 1)
Quarter: 2021Q3

REPORT INFORMATION
  Report Type: Spontaneous
  Country: US (occurrence: US)
  Receive Date: 20210927
  Receipt Date: 20210927
  Transmission Date: 20211014
  Serious: Yes (Other)
  Sender: FDA-Public Use
  Company Number: US-MYLANLABS-2021M1066223

PATIENT
  Age: 72 Year
  Sex: Male

DRUGS (4)
  1. ALPRAZOLAM. [Suspect]
     Active Substance: ALPRAZOLAM
     Indication: PANIC ATTACK
     Dosage: UNK, PRN (AS NECESSARY)
     Route: 065
  2. LEVODOPA/CARBIDOPA [Concomitant]
     Active Substance: CARBIDOPA\LEVODOPA
     Indication: PARKINSON^S DISEASE
     Dosage: 2 DOSAGE FORM, QID, TWO TABLETS 4 TIMES PER DAY. (IMMEDIATE RELEASE)
     Route: 065
  3. LEVODOPA/CARBIDOPA [Concomitant]
     Active Substance: CARBIDOPA\LEVODOPA
     Dosage: 1 DOSAGE FORM, TID, 1 TABLET 3 TIMES A DAY. (IMMEDIATE RELEASE)
     Route: 065
  4. SERTRALINE [Suspect]
     Active Substance: SERTRALINE HYDROCHLORIDE
     Indication: PANIC ATTACK
     Dosage: 50 MILLIGRAM, QD
     Route: 065

REACTIONS (4)
  - Somnolence [Recovered/Resolved]
  - Fall [Unknown]
  - Wrist fracture [Unknown]
  - Drug ineffective [Unknown]
